FAERS Safety Report 9901056 (Version 2)
Quarter: 2014Q1

REPORT INFORMATION
  Report Type: Spontaneous
  Country: JP (occurrence: JP)
  Receive Date: 20140217
  Receipt Date: 20140314
  Transmission Date: 20141002
  Serious: Yes (Death)
  Sender: FDA-Public Use
  Company Number: JP-MALLINCKRODT-T201401220

PATIENT
  Age: 50 Year
  Sex: Male
  Weight: 58.6 kg

DRUGS (22)
  1. METHADONE [Suspect]
     Indication: CANCER PAIN
     Dosage: 5 MG, TID
     Route: 048
     Dates: start: 20131128, end: 20131205
  2. METHADONE [Suspect]
     Dosage: 10 MG, TID
     Route: 048
     Dates: start: 20131205, end: 20131217
  3. OXINORM [Concomitant]
     Dosage: 10 MG, PRN
     Route: 048
     Dates: start: 20131127
  4. OPSO [Concomitant]
     Dosage: 10 MG, PRN
     Route: 048
     Dates: start: 20131130
  5. LOXOPROFEN SODIUM [Concomitant]
     Dosage: 180 MG, UNK
     Route: 048
     Dates: end: 20131217
  6. NAIXAN [Concomitant]
     Dosage: 300 MG, UNK
     Route: 048
     Dates: end: 20131217
  7. MOSAPRIDE CITRATE [Concomitant]
     Dosage: 15 MG, UNK
     Route: 048
     Dates: end: 20131213
  8. LYRICA [Concomitant]
     Dosage: 75 MG, UNK
     Route: 048
     Dates: end: 20131215
  9. NEXIUM [Concomitant]
     Dosage: 20 MG, UNK
     Route: 048
     Dates: end: 20131215
  10. AMLODIPINE [Concomitant]
     Dosage: 2.5 MG, UNK
     Route: 048
     Dates: end: 20131215
  11. MAGMITT [Concomitant]
     Dosage: 1980 MG, UNK
     Route: 048
     Dates: end: 20131217
  12. PANVITAN [Concomitant]
     Dosage: 1000 MG, UNK
     Route: 048
     Dates: end: 20131217
  13. PURSENNID [Concomitant]
     Dosage: 36 MG, UNK
     Route: 048
     Dates: end: 20131217
  14. DEPAS [Concomitant]
     Dosage: 1 MG, UNK
     Route: 048
     Dates: end: 20131213
  15. POTACOL R [Concomitant]
     Dosage: 500 ML, UNK
     Route: 051
     Dates: end: 20131217
  16. DECADRON [Concomitant]
     Dosage: 3.3 MG, UNK
     Route: 051
     Dates: end: 20131217
  17. BFLUID [Concomitant]
     Dosage: 500 ML, UNK
     Route: 051
     Dates: end: 20131206
  18. ZYPREXA [Concomitant]
     Dosage: 5 MG, UNK
     Route: 048
     Dates: start: 20131213, end: 20131215
  19. GASMOTIN [Concomitant]
     Dosage: 15 MG, UNK
     Route: 048
     Dates: start: 20131215, end: 20131215
  20. DUROTEP [Concomitant]
     Dosage: 4.2 MG, UNK
     Route: 062
     Dates: start: 20131216, end: 20131219
  21. RISPERDAL [Concomitant]
     Dosage: 0.5 MG, UNK
     Route: 048
     Dates: start: 20131216, end: 20131216
  22. MS CONTIN [Concomitant]
     Dosage: UNK
     Dates: end: 201311

REACTIONS (1)
  - Pleural mesothelioma [Fatal]
